FAERS Safety Report 7177109-5 (Version None)
Quarter: 2010Q4

REPORT INFORMATION
  Report Type: 
  Country: None (occurrence: None)
  Receive Date: 20101215
  Receipt Date: 20101215
  Transmission Date: 20110411
  Serious: Yes (Disabling)
  Sender: FDA-Public Use
  Company Number: None

PATIENT

DRUGS (2)
  1. ROCURONIUM BROMIDE [Suspect]
     Indication: ANAESTHESIA
     Dosage: ONCE IV BOLUS
     Route: 040
     Dates: start: 20101201, end: 20101213
  2. NEOSTIGMINE [Suspect]
     Indication: ANAESTHESIA REVERSAL
     Dosage: ONCE IV BOLUS
     Route: 040
     Dates: start: 20101201, end: 20101213

REACTIONS (2)
  - DRUG INEFFECTIVE [None]
  - PRODUCT QUALITY ISSUE [None]
